FAERS Safety Report 12609744 (Version 1)
Quarter: 2016Q3

REPORT INFORMATION
  Report Type: Spontaneous
  Country: US (occurrence: US)
  Receive Date: 20160801
  Receipt Date: 20160801
  Transmission Date: 20161109
  Serious: No
  Sender: FDA-Public Use
  Company Number: US-TEVA-656235USA

PATIENT
  Sex: Female
  Weight: 76.27 kg

DRUGS (7)
  1. METRONIDAZOLE. [Concomitant]
     Active Substance: METRONIDAZOLE
     Dates: start: 20160407
  2. RANITIDINE. [Suspect]
     Active Substance: RANITIDINE
     Dates: start: 201604
  3. ATORVASTATIN [Concomitant]
     Active Substance: ATORVASTATIN
     Dosage: TAKING OVER A YEAR
  4. FOSINOPRIL [Concomitant]
     Active Substance: FOSINOPRIL
     Dosage: TAKING OVER A YEAR
  5. INSULIN [Concomitant]
     Active Substance: INSULIN NOS
     Dosage: TAKING OVER A YEAR
  6. GABAPENTIN. [Concomitant]
     Active Substance: GABAPENTIN
     Dosage: TAKING OVER A YEAR
  7. FENOFIBRATE. [Concomitant]
     Active Substance: FENOFIBRATE
     Dosage: TAKING OVER A YEAR

REACTIONS (1)
  - Pruritus [Unknown]
